FAERS Safety Report 11976262 (Version 2)
Quarter: 2016Q1

REPORT INFORMATION
  Report Type: Spontaneous
  Country: US (occurrence: US)
  Receive Date: 20160129
  Receipt Date: 20160129
  Transmission Date: 20160526
  Serious: Yes (Other)
  Sender: FDA-Public Use
  Company Number: CHPA2015US015837

PATIENT
  Age: 29 Year
  Sex: Female
  Weight: 68.27 kg

DRUGS (2)
  1. VOLTAREN [Suspect]
     Active Substance: DICLOFENAC SODIUM
     Indication: PAIN IN EXTREMITY
     Dosage: UNK
     Route: 061
     Dates: start: 201506
  2. VOLTAREN [Suspect]
     Active Substance: DICLOFENAC SODIUM
     Indication: PERIPHERAL SWELLING

REACTIONS (6)
  - Crying [Unknown]
  - Peripheral swelling [Unknown]
  - Pain [Unknown]
  - Drug ineffective for unapproved indication [Unknown]
  - Loss of consciousness [Unknown]
  - Condition aggravated [Unknown]

NARRATIVE: CASE EVENT DATE: 201506
